FAERS Safety Report 16902958 (Version 2)
Quarter: 2019Q4

REPORT INFORMATION
  Report Type: Spontaneous
  Country: GB (occurrence: GB)
  Receive Date: 20191010
  Receipt Date: 20191015
  Transmission Date: 20200122
  Serious: Yes (Hospitalization, Other)
  Sender: FDA-Public Use
  Company Number: GB-STRIDES ARCOLAB LIMITED-2019SP009736

PATIENT
  Age: 50 Year
  Sex: Female

DRUGS (6)
  1. WARFARIN [Suspect]
     Active Substance: WARFARIN
     Indication: ARTIFICIAL HEART DEVICE USER
  2. IBUPROFEN. [Suspect]
     Active Substance: IBUPROFEN
     Indication: PYREXIA
     Dosage: UNK
     Route: 065
  3. ASPIRIN                            /00002701/ [Suspect]
     Active Substance: ASPIRIN
     Indication: ARTIFICIAL HEART DEVICE USER
  4. IBUPROFEN. [Suspect]
     Active Substance: IBUPROFEN
     Indication: COUGH
  5. WARFARIN [Suspect]
     Active Substance: WARFARIN
     Indication: ANTICOAGULANT THERAPY
     Dosage: UNK
     Route: 048
  6. ASPIRIN                            /00002701/ [Suspect]
     Active Substance: ASPIRIN
     Indication: ANTICOAGULANT THERAPY
     Dosage: 150 MILLIGRAM IN A DAY
     Route: 065

REACTIONS (6)
  - Subdural haematoma [Recovered/Resolved]
  - Hypoaesthesia [Unknown]
  - Lethargy [Unknown]
  - Headache [Unknown]
  - Brain midline shift [Unknown]
  - Paraesthesia [Unknown]
